FAERS Safety Report 8538939-8 (Version None)
Quarter: 2012Q3

REPORT INFORMATION
  Report Type: 
  Country: None (occurrence: None)
  Receive Date: 20120726
  Receipt Date: 20120717
  Transmission Date: 20120928
  Serious: Yes (Other)
  Sender: FDA-Public Use
  Company Number: CA-JNJFOC-20120709765

PATIENT
  Sex: Female
  Weight: 110 kg

DRUGS (3)
  1. REMICADE [Suspect]
     Route: 042
     Dates: start: 20120717
  2. REMICADE [Suspect]
     Indication: ARTHRITIS
     Route: 042
     Dates: start: 20080415
  3. ANTICOAGULANT [Concomitant]
     Route: 065

REACTIONS (1)
  - KNEE ARTHROPLASTY [None]
